FAERS Safety Report 10108782 (Version 3)
Quarter: 2014Q2

REPORT INFORMATION
  Report Type: Report from Study
  Country: US (occurrence: US)
  Receive Date: 20140425
  Receipt Date: 20140521
  Transmission Date: 20141212
  Serious: Yes (Other)
  Sender: FDA-Public Use
  Company Number: US-BRISTOL-MYERS SQUIBB COMPANY-20665774

PATIENT
  Sex: Female
  Weight: 2.25 kg

DRUGS (5)
  1. REYATAZ [Suspect]
     Route: 064
  2. NORVIR [Suspect]
     Route: 064
  3. ISENTRESS [Suspect]
     Dosage: AT THE TIME OF CONCEPTION
     Route: 064
  4. TRUVADA [Suspect]
     Dosage: 1 DF : 1 TAB/CAPS
     Route: 064
  5. RETROVIR [Suspect]
     Route: 064

REACTIONS (3)
  - Transposition of the great vessels [Unknown]
  - Premature baby [Unknown]
  - Foetal exposure during pregnancy [Recovered/Resolved]
